FAERS Safety Report 5239062-0 (Version None)
Quarter: 2007Q1

REPORT INFORMATION
  Report Type: 
  Country: None (occurrence: None)
  Receive Date: 20061208
  Receipt Date: 20050623
  Transmission Date: 20070707
  Serious: Yes (Other)
  Sender: FDA-Public Use
  Company Number: 2005UW09713

PATIENT
  Sex: Male

DRUGS (1)
  1. CRESTOR [Suspect]
     Dosage: 5 MG QD PO
     Route: 048

REACTIONS (4)
  - APHONIA [None]
  - CONSTIPATION [None]
  - DYSPEPSIA [None]
  - GASTROOESOPHAGEAL REFLUX DISEASE [None]
